FAERS Safety Report 19741232 (Version 1)
Quarter: 2021Q3

REPORT INFORMATION
  Report Type: Spontaneous
  Country: FR (occurrence: FR)
  Receive Date: 20210825
  Receipt Date: 20210825
  Transmission Date: 20211014
  Serious: Yes (Hospitalization, Other)
  Sender: FDA-Public Use
  Company Number: FR-AUROBINDO-AUR-APL-2021-035685

PATIENT
  Age: 74 Year
  Sex: Male
  Weight: 100 kg

DRUGS (1)
  1. AMOXICILLIN ARROW  DISPERSIBLE TABLET 1G [Suspect]
     Active Substance: AMOXICILLIN
     Indication: INFECTION
     Dosage: 1 GRAM, TWO TIMES A DAY
     Route: 048
     Dates: start: 20210623

REACTIONS (1)
  - Tubulointerstitial nephritis [Recovering/Resolving]

NARRATIVE: CASE EVENT DATE: 20210729
